FAERS Safety Report 8249123-X (Version None)
Quarter: 2012Q2

REPORT INFORMATION
  Report Type: 
  Country: None (occurrence: None)
  Receive Date: 20120402
  Receipt Date: 20120329
  Transmission Date: 20120825
  Serious: No
  Sender: FDA-Public Use
  Company Number: US-PFIZER INC-2012081014

PATIENT
  Sex: Female
  Weight: 49.433 kg

DRUGS (12)
  1. LORAZEPAM [Concomitant]
     Indication: ANXIETY
     Dosage: 1 MG, DAILY
  2. LORAZEPAM [Concomitant]
     Indication: SLEEP DISORDER
  3. CHANTIX [Suspect]
     Dosage: UNK
     Route: 048
     Dates: start: 20120301, end: 20120329
  4. CASCARA SAGRADA [Suspect]
     Indication: CONSTIPATION
     Dosage: UNK
  5. LISINOPRIL [Concomitant]
     Indication: ANGINA PECTORIS
     Dosage: 5 MG, DAILY
  6. CALCIUM [Concomitant]
     Indication: BONE DISORDER
     Dosage: UNK
  7. CARVEDILOL [Concomitant]
     Indication: CARDIAC DISORDER
     Dosage: 3.125 MG, DAILY
  8. LEVOTHYROXINE [Concomitant]
     Dosage: 0.05 MG, DAILY
  9. ACTONEL [Concomitant]
     Indication: BONE DISORDER
     Dosage: UNK, WEEKLY
  10. GINSENG [Concomitant]
     Dosage: UNK
  11. CHANTIX [Suspect]
     Indication: SMOKING CESSATION THERAPY
     Dosage: 0.5 MG, DAILY
     Route: 048
     Dates: start: 20120317, end: 20120301
  12. CHANTIX [Suspect]
     Dosage: 1 MG, 2X/DAY
     Route: 048
     Dates: start: 20120301, end: 20120301

REACTIONS (5)
  - WEIGHT INCREASED [None]
  - NAUSEA [None]
  - MALAISE [None]
  - SOMNOLENCE [None]
  - CONSTIPATION [None]
